FAERS Safety Report 10792175 (Version 2)
Quarter: 2015Q1

REPORT INFORMATION
  Report Type: Spontaneous
  Country: BR (occurrence: BR)
  Receive Date: 20150213
  Receipt Date: 20150304
  Transmission Date: 20150721
  Serious: Yes (Other)
  Sender: FDA-Public Use
  Company Number: BR-ROCHE-1536930

PATIENT
  Sex: Male
  Weight: 79 kg

DRUGS (5)
  1. CYMEVENE [Suspect]
     Active Substance: GANCICLOVIR
     Indication: CYTOMEGALOVIRUS INFECTION
     Dosage: 500 MG
     Route: 042
     Dates: start: 20150128, end: 2015
  2. BACTRIM F [Concomitant]
     Dosage: TABLETS; 800/160 MG, 1 TABLET 3 TIMES A WEEK, PREVENTION (NOS)
     Route: 065
     Dates: start: 201501
  3. OMEPRAZOLE. [Concomitant]
     Active Substance: OMEPRAZOLE
     Dosage: STOMACH (NOS)
     Route: 065
     Dates: start: 201501
  4. CYMEVENE [Suspect]
     Active Substance: GANCICLOVIR
     Dosage: 500 MG
     Route: 042
     Dates: start: 2015
  5. CYCLOSPORINE. [Concomitant]
     Active Substance: CYCLOSPORINE
     Dosage: EVERY 12 HOURS, DUE TO TRANSPLANT (NOS)
     Route: 065
     Dates: start: 201501

REACTIONS (1)
  - Drug resistance [Unknown]
